FAERS Safety Report 8381068-7 (Version None)
Quarter: 2012Q2

REPORT INFORMATION
  Report Type: 
  Country: None (occurrence: None)
  Receive Date: 20120523
  Receipt Date: 20120515
  Transmission Date: 20120825
  Serious: Yes (Death, Hospitalization, Other)
  Sender: FDA-Public Use
  Company Number: US-VERTEX PHARMACEUTICALS INC.-AE-2012-006516

PATIENT
  Sex: Female

DRUGS (3)
  1. INCIVEK [Suspect]
     Indication: HEPATITIS C
     Route: 048
     Dates: start: 20120207
  2. RIBAVIRIN [Concomitant]
     Indication: HEPATITIS C
     Route: 048
     Dates: start: 20120207
  3. PEGASYS [Concomitant]
     Indication: HEPATITIS C
     Route: 058
     Dates: start: 20120207

REACTIONS (8)
  - HEPATIC CIRRHOSIS [None]
  - URINARY TRACT INFECTION [None]
  - SEPTIC SHOCK [None]
  - ASCITES [None]
  - PERITONITIS BACTERIAL [None]
  - PNEUMONIA [None]
  - UMBILICAL HERNIA [None]
  - RASH ERYTHEMATOUS [None]
